FAERS Safety Report 21980909 (Version 1)
Quarter: 2023Q1

REPORT INFORMATION
  Report Type: Report from Study
  Country: ES (occurrence: ES)
  Receive Date: 20230211
  Receipt Date: 20230211
  Transmission Date: 20230418
  Serious: Yes (Other)
  Sender: FDA-Public Use
  Company Number: ES-JNJFOC-20230207512

PATIENT
  Sex: Male

DRUGS (1)
  1. APALUTAMIDE [Suspect]
     Active Substance: APALUTAMIDE
     Indication: Hormone-dependent prostate cancer
     Route: 048

REACTIONS (7)
  - Hypothyroidism [Unknown]
  - Asthenia [Unknown]
  - Skin reaction [Unknown]
  - Dysgeusia [Unknown]
  - Hypertension [Unknown]
  - Arthralgia [Unknown]
  - Diarrhoea [Unknown]
